FAERS Safety Report 15238994 (Version 2)
Quarter: 2018Q4

REPORT INFORMATION
  Report Type: Spontaneous
  Country: PL (occurrence: PL)
  Receive Date: 20180803
  Receipt Date: 20181126
  Transmission Date: 20190204
  Serious: Yes (Hospitalization, Other)
  Sender: FDA-Public Use
  Company Number: PL-SA-2018SA164140

PATIENT
  Sex: Female

DRUGS (13)
  1. MELATONIN [Suspect]
     Active Substance: MELATONIN
     Dosage: 20 MG, QD
  2. ZOLPIDEM TARTRATE. [Suspect]
     Active Substance: ZOLPIDEM TARTRATE
     Dosage: UNK(DOSE REDUCED)
  3. CARBAMAZEPINE. [Suspect]
     Active Substance: CARBAMAZEPINE
  4. ACETAMINOPHEN AND CODEINE [Suspect]
     Active Substance: ACETAMINOPHEN\CODEINE PHOSPHATE
     Dosage: 8 TABLETS EVERY 3 DAYS
  5. HYDROXYZINE [Suspect]
     Active Substance: HYDROXYZINE HYDROCHLORIDE
  6. ZOLPIDEM TARTRATE. [Suspect]
     Active Substance: ZOLPIDEM TARTRATE
     Dosage: UNK(DOSE UNKNOWN)
  7. CHLORDIAZEPOXIDE. [Suspect]
     Active Substance: CHLORDIAZEPOXIDE
  8. CHLORDIAZEPOXIDE. [Suspect]
     Active Substance: CHLORDIAZEPOXIDE
  9. ZOLPIDEM TARTRATE. [Suspect]
     Active Substance: ZOLPIDEM TARTRATE
     Indication: LYMPHOMA
     Dosage: UNK(DOSE REDUCED)
     Dates: start: 2010
  10. ZOLPIDEM TARTRATE. [Suspect]
     Active Substance: ZOLPIDEM TARTRATE
     Dosage: 1800 MG, QD
  11. CODEINE [Suspect]
     Active Substance: CODEINE
     Dosage: UNK
  12. ZOLPIDEM TARTRATE. [Suspect]
     Active Substance: ZOLPIDEM TARTRATE
     Indication: SLEEP DISORDER
     Dosage: UNK UNK, UNK
     Dates: start: 2008
  13. PROPRANOLOL HYDROCHLORIDE. [Suspect]
     Active Substance: PROPRANOLOL HYDROCHLORIDE

REACTIONS (6)
  - Withdrawal syndrome [Unknown]
  - Drug dependence [Unknown]
  - Pancreatitis acute [Unknown]
  - Drug ineffective [Unknown]
  - Drug abuse [Unknown]
  - Overdose [Unknown]
